FAERS Safety Report 25872272 (Version 5)
Quarter: 2025Q4

REPORT INFORMATION
  Report Type: Spontaneous
  Country: EU (occurrence: EU)
  Receive Date: 20251002
  Receipt Date: 20251101
  Transmission Date: 20260117
  Serious: Yes (Hospitalization, Other)
  Sender: CELLTRION
  Company Number: EU-AMGEN-ESPSP2025184433

PATIENT

DRUGS (7)
  1. ADALIMUMAB [Suspect]
     Active Substance: ADALIMUMAB
     Indication: Crohn^s disease
     Dosage: UNK
     Route: 065
     Dates: start: 2022, end: 2022
  2. ADALIMUMAB [Suspect]
     Active Substance: ADALIMUMAB
     Dosage: UNK
     Route: 058
     Dates: start: 2022
  3. USTEKINUMAB [Suspect]
     Active Substance: USTEKINUMAB
     Indication: Crohn^s disease
     Dosage: 260 MG
     Route: 042
     Dates: start: 20220322
  4. STELARA [Suspect]
     Active Substance: USTEKINUMAB
     Indication: Crohn^s disease
     Dosage: 260 MG
     Route: 040
     Dates: start: 20220322
  5. STELARA [Suspect]
     Active Substance: USTEKINUMAB
     Indication: Crohn^s disease
     Dosage: 90 MG
     Route: 058
  6. USTEKINUMAB [Suspect]
     Active Substance: USTEKINUMAB
     Indication: Crohn^s disease
     Dosage: 90 MG
     Route: 058
     Dates: start: 2022, end: 2022
  7. METHOTREXATE [Suspect]
     Active Substance: METHOTREXATE
     Indication: Crohn^s disease
     Dosage: UNK
     Route: 065
     Dates: start: 2022

REACTIONS (9)
  - Adjustment disorder [Unknown]
  - Borderline personality disorder [Unknown]
  - Intentional self-injury [Unknown]
  - Suicidal ideation [Recovering/Resolving]
  - Drug intolerance [Unknown]
  - Suicide attempt [Unknown]
  - Demyelination [Unknown]
  - Affect lability [Unknown]
  - Anxiety [Unknown]

NARRATIVE: CASE EVENT DATE: 20220101
